FAERS Safety Report 9356878 (Version 9)
Quarter: 2015Q2

REPORT INFORMATION
  Report Type: Report from Study
  Country: CA (occurrence: CA)
  Receive Date: 20130620
  Receipt Date: 20150608
  Transmission Date: 20150821
  Serious: Yes (Hospitalization, Other)
  Sender: FDA-Public Use
  Company Number: CA-ROCHE-1238254

PATIENT
  Sex: Female
  Weight: 65.8 kg

DRUGS (9)
  1. INDOCID [Concomitant]
     Active Substance: INDOMETHACIN
  2. VALSARTAN. [Concomitant]
     Active Substance: VALSARTAN
  3. LOSEC [Concomitant]
     Active Substance: OMEPRAZOLE
  4. GABAPENTIN. [Concomitant]
     Active Substance: GABAPENTIN
  5. RITUXAN [Suspect]
     Active Substance: RITUXIMAB
     Indication: RHEUMATOID ARTHRITIS
     Route: 042
     Dates: start: 2011
  6. THYROXINE [Concomitant]
     Active Substance: LEVOTHYROXINE
  7. BACTOFEN [Concomitant]
  8. ACTEMRA [Suspect]
     Active Substance: TOCILIZUMAB
     Indication: RHEUMATOID ARTHRITIS
     Route: 042
     Dates: start: 20110504, end: 20110504
  9. PERCOCET [Concomitant]
     Active Substance: ACETAMINOPHEN\OXYCODONE HYDROCHLORIDE

REACTIONS (10)
  - Pain [Not Recovered/Not Resolved]
  - Rheumatoid arthritis [Not Recovered/Not Resolved]
  - Arthropathy [Unknown]
  - Arthritis bacterial [Not Recovered/Not Resolved]
  - Spinal compression fracture [Not Recovered/Not Resolved]
  - Infusion related reaction [Recovered/Resolved]
  - Neuralgia [Not Recovered/Not Resolved]
  - Arthropathy [Not Recovered/Not Resolved]
  - Malaise [Not Recovered/Not Resolved]
  - Surgery [Unknown]

NARRATIVE: CASE EVENT DATE: 2011
